FAERS Safety Report 6014746-5 (Version None)
Quarter: 2008Q4

REPORT INFORMATION
  Report Type: 
  Country: None (occurrence: None)
  Receive Date: 20081219
  Receipt Date: 20081204
  Transmission Date: 20090506
  Serious: Yes (Death, Hospitalization)
  Sender: FDA-Public Use
  Company Number: IL-GENENTECH-273829

PATIENT
  Sex: Female

DRUGS (2)
  1. MABTHERA [Suspect]
     Indication: NON-HODGKIN'S LYMPHOMA
     Route: 065
  2. CHEMOTHERAPY NOS [Concomitant]
     Indication: DRUG USE FOR UNKNOWN INDICATION

REACTIONS (2)
  - COMA [None]
  - NERVOUS SYSTEM DISORDER [None]
